FAERS Safety Report 5880015-7 (Version None)
Quarter: 2008Q3

REPORT INFORMATION
  Report Type: 
  Country: None (occurrence: None)
  Receive Date: 20080910
  Receipt Date: 20080910
  Transmission Date: 20090109
  Serious: Yes (Death)
  Sender: FDA-Public Use
  Company Number: None

PATIENT
  Sex: Male
  Weight: 104 kg

DRUGS (1)
  1. DASATINIB [Suspect]
     Indication: GASTROINTESTINAL STROMAL TUMOUR
     Dosage: 100 MG DAILY PO
     Route: 048
     Dates: start: 20080701, end: 20080820

REACTIONS (8)
  - DISEASE PROGRESSION [None]
  - DYSPNOEA [None]
  - FATIGUE [None]
  - GASTRITIS [None]
  - GASTROOESOPHAGEAL REFLUX DISEASE [None]
  - METASTASES TO LIVER [None]
  - METASTASES TO LUNG [None]
  - METASTASES TO PERITONEUM [None]
